FAERS Safety Report 12623347 (Version 4)
Quarter: 2017Q1

REPORT INFORMATION
  Report Type: Spontaneous
  Country: US (occurrence: US)
  Receive Date: 20160804
  Receipt Date: 20170324
  Transmission Date: 20170428
  Serious: Yes (Hospitalization)
  Sender: FDA-Public Use
  Company Number: US-JNJFOC-20160724190

PATIENT
  Age: 64 Year
  Sex: Female

DRUGS (3)
  1. XARELTO [Suspect]
     Active Substance: RIVAROXABAN
     Indication: FRACTURE TREATMENT
     Route: 048
     Dates: end: 20150908
  2. XARELTO [Suspect]
     Active Substance: RIVAROXABAN
     Indication: FRACTURE TREATMENT
     Route: 048
  3. XARELTO [Suspect]
     Active Substance: RIVAROXABAN
     Indication: FRACTURE TREATMENT
     Route: 048
     Dates: start: 201508, end: 201508

REACTIONS (5)
  - Product use issue [Unknown]
  - Arterial haemorrhage [Recovering/Resolving]
  - Off label use [Unknown]
  - Vascular pseudoaneurysm [Recovering/Resolving]
  - Haematoma [Recovering/Resolving]

NARRATIVE: CASE EVENT DATE: 201507
